FAERS Safety Report 10068168 (Version 1)
Quarter: 2014Q2

REPORT INFORMATION
  Report Type: Spontaneous
  Country: US (occurrence: US)
  Receive Date: 20140409
  Receipt Date: 20140409
  Transmission Date: 20141212
  Serious: No
  Sender: FDA-Public Use
  Company Number: US-PFIZER INC-2014098709

PATIENT
  Age: 82 Year
  Sex: Male
  Weight: 81.63 kg

DRUGS (5)
  1. VIAGRA [Suspect]
     Indication: ERECTILE DYSFUNCTION
     Dosage: UNK
     Dates: start: 2013
  2. VIAGRA [Suspect]
     Dosage: 100 MG, UNK
     Dates: end: 201403
  3. LITHIUM [Concomitant]
     Indication: MOOD SWINGS
     Dosage: UNK, DAILY
  4. LITHIUM [Concomitant]
     Indication: DEPRESSION
  5. SYNTHROID [Concomitant]
     Indication: THYROID DISORDER
     Dosage: 100 UG, DAILY

REACTIONS (2)
  - Headache [Unknown]
  - Drug ineffective [Unknown]
